FAERS Safety Report 15876437 (Version 3)
Quarter: 2021Q1

REPORT INFORMATION
  Report Type: Spontaneous
  Country: ES (occurrence: ES)
  Receive Date: 20190126
  Receipt Date: 20210126
  Transmission Date: 20210419
  Serious: Yes (Death, Life-Threatening, Hospitalization, Other)
  Sender: FDA-Public Use
  Company Number: PHHY2019ES014142

PATIENT
  Age: 89 Year
  Sex: Female

DRUGS (2)
  1. BUDESONIDE, FORMOTEROL FUMARATE [Suspect]
     Active Substance: BUDESONIDE\FORMOTEROL FUMARATE DIHYDRATE
     Indication: BRONCHIECTASIS
     Dosage: 160/4.5 MCG, Q12H 1 INHALATION
     Route: 055
  2. BUDESONIDE, FORMOTEROL FUMARATE [Suspect]
     Active Substance: BUDESONIDE\FORMOTEROL FUMARATE DIHYDRATE
     Indication: ASTHMA

REACTIONS (5)
  - Escherichia infection [Unknown]
  - Pyopneumothorax [Fatal]
  - Respiratory failure [Unknown]
  - Pulmonary nocardiosis [Fatal]
  - Ileus paralytic [Fatal]

NARRATIVE: CASE EVENT DATE: 2015
